FAERS Safety Report 4369772-9 (Version None)
Quarter: 2004Q2

REPORT INFORMATION
  Report Type: 
  Country: None (occurrence: None)
  Receive Date: 20040525
  Receipt Date: 20040512
  Transmission Date: 20050107
  Serious: Yes (Death, Hospitalization, Other)
  Sender: FDA-Public Use
  Company Number: 2004032416

PATIENT
  Age: 73 Year
  Sex: Female

DRUGS (9)
  1. AMLODIPINE        (AMLODIPINE) [Suspect]
     Indication: ILL-DEFINED DISORDER
     Dosage: ORAL
     Route: 048
     Dates: end: 20000101
  2. CEFEPIME (CEFEPIME) [Suspect]
     Indication: ACTINOMYCOSIS
     Dates: start: 20000101, end: 20000101
  3. MEROPENEM (MEROPENEM) [Suspect]
     Indication: ACTINOMYCOSIS
     Dates: start: 20000101, end: 20000101
  4. MINOCYCLINE HCL [Suspect]
     Indication: ACTINOMYCOSIS
     Dates: start: 20000101, end: 20000101
  5. MINOCYCLINE HCL [Suspect]
     Indication: STAPHYLOCOCCAL INFECTION
     Dates: start: 20000101, end: 20000101
  6. SENNOSIDE A+B (SENNOSIDE A+B) [Suspect]
     Indication: ILL-DEFINED DISORDER
     Dates: start: 20001001, end: 20000101
  7. METHYLPREDNISOLONE SODIUM SUCCINATE [Suspect]
     Indication: PITYRIASIS LICHENOIDES ET VARIOLIFORMIS ACUTA
     Dates: start: 20001101, end: 20000101
  8. BACTRIM [Concomitant]
  9. FAMOTIDINE [Concomitant]

REACTIONS (29)
  - ACTINOMYCOSIS [None]
  - ACTINOMYCOTIC PULMONARY INFECTION [None]
  - ASPERGILLOSIS [None]
  - DEHYDRATION [None]
  - DRUG ERUPTION [None]
  - DRUG HYPERSENSITIVITY [None]
  - DRUG INEFFECTIVE [None]
  - EOSINOPHIL COUNT INCREASED [None]
  - EPSTEIN-BARR VIRUS ANTIBODY POSITIVE [None]
  - HAEMOGLOBIN DECREASED [None]
  - HTLV-1 ANTIGEN POSITIVE [None]
  - HUMAN HERPES VIRUS 6 SEROLOGY POSITIVE [None]
  - HYPERKERATOSIS [None]
  - LYMPHOCYTE COUNT DECREASED [None]
  - LYMPHOCYTE STIMULATION TEST POSITIVE [None]
  - LYMPHOCYTIC INFILTRATION [None]
  - NAIL DISORDER [None]
  - NEPHRITIS INTERSTITIAL [None]
  - NOCARDIOSIS [None]
  - PARAPSORIASIS [None]
  - PIGMENTATION DISORDER [None]
  - PITYRIASIS LICHENOIDES ET VARIOLIFORMIS ACUTA [None]
  - POIKILODERMA [None]
  - PSEUDOMONAS INFECTION [None]
  - PYREXIA [None]
  - RENAL FAILURE [None]
  - SKIN ATROPHY [None]
  - SKIN NECROSIS [None]
  - STAPHYLOCOCCAL INFECTION [None]
